FAERS Safety Report 11149780 (Version 2)
Quarter: 2015Q2

REPORT INFORMATION
  Report Type: Report from Study
  Country: DE (occurrence: DE)
  Receive Date: 20150529
  Receipt Date: 20150609
  Transmission Date: 20150821
  Serious: Yes (Hospitalization)
  Sender: FDA-Public Use
  Company Number: DE-TEVA-558921GER

PATIENT
  Age: 71 Year
  Sex: Female
  Weight: 73 kg

DRUGS (12)
  1. DECORTIN [Concomitant]
     Active Substance: PREDNISONE
     Indication: INFLAMMATION
     Dosage: D 1-5
     Route: 048
     Dates: start: 20150316, end: 20150407
  2. FENISTIL [Concomitant]
     Active Substance: DIMETHINDENE
     Indication: INFLAMMATION
     Route: 042
     Dates: start: 20150316, end: 20150407
  3. NEULASTA [Suspect]
     Active Substance: PEGFILGRASTIM
     Indication: NEUTROPENIA
     Route: 058
     Dates: start: 20150318, end: 20150408
  4. VINCRISTIN [Suspect]
     Active Substance: VINCRISTINE
     Indication: CHEMOTHERAPY
     Dosage: PER CYCLE
     Route: 042
     Dates: start: 20150317, end: 20150407
  5. EPIRUBICIN [Suspect]
     Active Substance: EPIRUBICIN
     Indication: CHEMOTHERAPY
     Dosage: PER CYCLE
     Route: 042
     Dates: start: 20150317, end: 20150407
  6. PARACETAMOL [Concomitant]
     Active Substance: ACETAMINOPHEN
     Indication: PAIN
     Route: 048
     Dates: start: 20150216, end: 20150407
  7. UROMITEXAN [Concomitant]
     Active Substance: MESNA
     Indication: PROPHYLAXIS
     Route: 042
     Dates: start: 20150317, end: 20150407
  8. RITUXIMAB [Suspect]
     Active Substance: RITUXIMAB
     Indication: CHEMOTHERAPY
     Dosage: PER CYCLE
     Route: 042
     Dates: start: 20150316, end: 20150407
  9. LONQUEX [Suspect]
     Active Substance: LIPEGFILGRASTIM
     Dosage: ON DAY 3 OF CYCLE
     Route: 058
  10. ANEMET [Concomitant]
     Indication: HYPERSENSITIVITY
     Route: 042
     Dates: start: 20150317, end: 20150407
  11. ENDOXAN [Suspect]
     Active Substance: CYCLOPHOSPHAMIDE
     Indication: CHEMOTHERAPY
     Route: 042
     Dates: start: 20150317, end: 20150407
  12. FORTECORTIN [Concomitant]
     Active Substance: DEXAMETHASONE
     Indication: PROPHYLAXIS OF NAUSEA AND VOMITING
     Route: 042
     Dates: start: 20150317, end: 20150407

REACTIONS (1)
  - Colitis ischaemic [Recovered/Resolved]

NARRATIVE: CASE EVENT DATE: 20150425
